FAERS Safety Report 4549275-9 (Version None)
Quarter: 2005Q1

REPORT INFORMATION
  Report Type: 
  Country: None (occurrence: None)
  Receive Date: 20050110
  Receipt Date: 20050110
  Transmission Date: 20050727
  Serious: Yes (Other)
  Sender: FDA-Public Use
  Company Number: None

PATIENT
  Age: 35 Year
  Sex: Female

DRUGS (2)
  1. DOXYCYCLINE [Suspect]
     Indication: PREOPERATIVE CARE
     Dosage: 100 MG Q IVPB - ONE DOSE
     Route: 042
     Dates: start: 20050107
  2. DOXYCYCLINE [Suspect]
     Indication: PROPHYLAXIS
     Dosage: 100 MG Q IVPB - ONE DOSE
     Route: 042
     Dates: start: 20050107

REACTIONS (4)
  - FEELING ABNORMAL [None]
  - INFUSION RELATED REACTION [None]
  - INFUSION SITE PAIN [None]
  - LIVEDO RETICULARIS [None]
